FAERS Safety Report 16653138 (Version 6)
Quarter: 2020Q4

REPORT INFORMATION
  Report Type: Spontaneous
  Country: US (occurrence: US)
  Receive Date: 20190731
  Receipt Date: 20201014
  Transmission Date: 20210113
  Serious: Yes (Other)
  Sender: FDA-Public Use
  Company Number: US-PFIZER INC-2019325491

PATIENT
  Age: 67 Year
  Sex: Female
  Weight: 84 kg

DRUGS (2)
  1. BOSULIF [Suspect]
     Active Substance: BOSUTINIB MONOHYDRATE
     Indication: CHRONIC MYELOID LEUKAEMIA
     Dosage: 500 MG, DAILY
     Route: 048
     Dates: start: 201701, end: 20191129
  2. BOSULIF [Suspect]
     Active Substance: BOSUTINIB MONOHYDRATE
     Dosage: 500 MG, 1X/DAY
     Route: 048

REACTIONS (17)
  - Dizziness [Unknown]
  - Fatigue [Unknown]
  - Dysarthria [Unknown]
  - COVID-19 [Unknown]
  - Dehydration [Unknown]
  - Diarrhoea [Unknown]
  - Loss of consciousness [Unknown]
  - Hypotension [Unknown]
  - Vomiting [Unknown]
  - Ear infection [Unknown]
  - Orthostatic hypotension [Unknown]
  - Decreased appetite [Unknown]
  - Headache [Not Recovered/Not Resolved]
  - Nausea [Unknown]
  - Pain [Unknown]
  - Palpitations [Unknown]
  - Abdominal pain [Unknown]

NARRATIVE: CASE EVENT DATE: 20201001
